FAERS Safety Report 19643779 (Version 9)
Quarter: 2022Q1

REPORT INFORMATION
  Report Type: Report from Study
  Country: US (occurrence: US)
  Receive Date: 20210731
  Receipt Date: 20220323
  Transmission Date: 20220423
  Serious: Yes (Other)
  Sender: FDA-Public Use
  Company Number: NVSC2021US169208

PATIENT
  Sex: Male

DRUGS (9)
  1. ENTRESTO [Suspect]
     Active Substance: SACUBITRIL\VALSARTAN
     Indication: Cardiac failure
     Dosage: 50 MG, BID (24/26 MG)
     Route: 048
     Dates: start: 20210710
  2. CARVEDILOL [Suspect]
     Active Substance: CARVEDILOL
     Indication: Product used for unknown indication
     Dosage: UNK
     Route: 065
  3. METOPROLOL [Suspect]
     Active Substance: METOPROLOL
     Indication: Product used for unknown indication
     Dosage: 25 MG, BID
     Route: 065
     Dates: start: 20210702
  4. CRESTOR [Suspect]
     Active Substance: ROSUVASTATIN CALCIUM
     Indication: Product used for unknown indication
     Dosage: UNK
     Route: 065
     Dates: start: 20210702
  5. TOPROL XL [Suspect]
     Active Substance: METOPROLOL SUCCINATE
     Indication: Product used for unknown indication
     Dosage: UNK
     Route: 065
  6. ZEBETA [Suspect]
     Active Substance: BISOPROLOL FUMARATE
     Indication: Product used for unknown indication
     Dosage: 10 MG
     Route: 065
  7. ZEBETA [Suspect]
     Active Substance: BISOPROLOL FUMARATE
     Dosage: 5 MG
     Route: 065
  8. LUPRON [Concomitant]
     Active Substance: LEUPROLIDE ACETATE
     Indication: Prostate cancer stage IV
     Dosage: UNK
     Route: 065
  9. CALCIUM [Concomitant]
     Active Substance: CALCIUM
     Indication: Product used for unknown indication
     Dosage: UNK (CURRENTLY TAKING 2 CALCIUM SUPPLEMENTS)
     Route: 065

REACTIONS (9)
  - Prostatic specific antigen increased [Unknown]
  - Heart rate variability increased [Unknown]
  - Weight fluctuation [Unknown]
  - Left ventricular enlargement [Unknown]
  - Throat clearing [Unknown]
  - Oxygen consumption decreased [Recovering/Resolving]
  - Heart rate decreased [Unknown]
  - Fatigue [Unknown]
  - Dizziness postural [Unknown]
